FAERS Safety Report 13506861 (Version 1)
Quarter: 2017Q2

REPORT INFORMATION
  Report Type: Report from Study
  Country: US (occurrence: US)
  Receive Date: 20170502
  Receipt Date: 20170502
  Transmission Date: 20170830
  Serious: Yes (Death, Hospitalization, Other)
  Sender: FDA-Public Use
  Company Number: US-TEVA-764391USA

PATIENT
  Age: 14 Year
  Sex: Female
  Weight: 60.47 kg

DRUGS (24)
  1. MITOXANTRONE [Suspect]
     Active Substance: MITOXANTRONE HYDROCHLORIDE
     Indication: B PRECURSOR TYPE ACUTE LEUKAEMIA
     Dosage: 10MG/M2, OVER 30MIN ON DAYS 1 AND 2
     Route: 042
     Dates: start: 20120430, end: 20120501
  2. PEGASPARGASE [Suspect]
     Active Substance: PEGASPARGASE
     Indication: B PRECURSOR TYPE ACUTE LEUKAEMIA
     Dosage: 2500IU/M2 OVER 1 HR ON DAYS 3 AND 17
     Route: 042
     Dates: start: 20120430, end: 20120516
  3. HYDROCODONE BITARTRATE AND ACETAMINOPHEN [Concomitant]
     Active Substance: ACETAMINOPHEN\HYDROCODONE BITARTRATE
     Route: 065
  4. PIPERACILLIN AND TAZOBACTAM [Concomitant]
     Active Substance: PIPERACILLIN SODIUM\TAZOBACTAM SODIUM
     Route: 065
  5. POLYETHYLENE GLYCOL [Concomitant]
     Active Substance: POLYETHYLENE GLYCOLS
     Route: 065
  6. IMITREX [Concomitant]
     Active Substance: SUMATRIPTAN SUCCINATE
     Route: 065
  7. TEMSIROLIMUS [Suspect]
     Active Substance: TEMSIROLIMUS
     Indication: B PRECURSOR TYPE ACUTE LEUKAEMIA
     Dosage: 7.5MG/M2 OVER 30MIN ON DAYS 1,8 AND 15
     Route: 042
     Dates: start: 20120430, end: 20120515
  8. IBUPROFEN. [Concomitant]
     Active Substance: IBUPROFEN
     Route: 065
  9. FENTANYL. [Concomitant]
     Active Substance: FENTANYL
     Route: 065
  10. LMX 4% CREAM [Concomitant]
     Route: 065
  11. METHOTREXATE. [Suspect]
     Active Substance: METHOTREXATE
     Indication: B PRECURSOR TYPE ACUTE LEUKAEMIA
     Dosage: 8-15MG(AGE BASED) IT ON DAYS 1(OR UP TO 72HRS PRIOR TO DAY 1) AND 8
     Route: 037
     Dates: start: 20120430, end: 20120507
  12. FAMOTIDINE. [Concomitant]
     Active Substance: FAMOTIDINE
     Route: 065
  13. AMBISONE [Suspect]
     Active Substance: AMPHOTERICIN B
     Indication: CANDIDA INFECTION
     Route: 065
     Dates: start: 20120520
  14. SEPTRA [Concomitant]
     Active Substance: SULFAMETHOXAZOLE\TRIMETHOPRIM
     Route: 065
  15. CEFEPIME [Suspect]
     Active Substance: CEFEPIME HYDROCHLORIDE
     Indication: PNEUMONIA KLEBSIELLA
     Route: 065
     Dates: start: 20120510
  16. CALCIUM GLUCONATE. [Suspect]
     Active Substance: CALCIUM GLUCONATE
     Route: 065
  17. PHENERGAN [Concomitant]
     Active Substance: PROMETHAZINE HYDROCHLORIDE
     Route: 065
  18. TYLENOL [Concomitant]
     Active Substance: ACETAMINOPHEN
     Route: 065
  19. ZOFRAN [Concomitant]
     Active Substance: ONDANSETRON HYDROCHLORIDE
     Route: 065
  20. VINCRISTINE [Suspect]
     Active Substance: VINCRISTINE
     Indication: B PRECURSOR TYPE ACUTE LEUKAEMIA
     Dosage: 1.5MG/M2 CYCLIC (MAX 2MG) OVER 1-5 MIN ON DAYS 1,8,15 AND 22
     Route: 042
     Dates: start: 20120430, end: 20120521
  21. DEXAMETHASONE SODIUM PHOSPHATE. [Suspect]
     Active Substance: DEXAMETHASONE SODIUM PHOSPHATE
     Indication: B PRECURSOR TYPE ACUTE LEUKAEMIA
     Dosage: 10MG/M2 TWICE DAILY ON DAYS 1-5 AND 15-19, ORAL OR IV
     Route: 065
     Dates: start: 20120430, end: 20120519
  22. VANCOMYCIN [Concomitant]
     Active Substance: VANCOMYCIN
     Route: 065
  23. MIRALAX [Concomitant]
     Active Substance: POLYETHYLENE GLYCOL 3350
     Route: 065
  24. MORPHINE [Concomitant]
     Active Substance: MORPHINE
     Route: 065

REACTIONS (5)
  - Sepsis [Fatal]
  - Posterior reversible encephalopathy syndrome [Not Recovered/Not Resolved]
  - Stomatitis [Not Recovered/Not Resolved]
  - Seizure [Recovered/Resolved]
  - Enterocolitis [Not Recovered/Not Resolved]

NARRATIVE: CASE EVENT DATE: 201205
